FAERS Safety Report 18105310 (Version 1)
Quarter: 2020Q3

REPORT INFORMATION
  Report Type: Spontaneous
  Country: US (occurrence: US)
  Receive Date: 20200804
  Receipt Date: 20200804
  Transmission Date: 20201103
  Serious: No
  Sender: FDA-Public Use
  Company Number: US-JNJFOC-20200737896

PATIENT
  Sex: Male
  Weight: 86.26 kg

DRUGS (3)
  1. VITAMIN D                          /00107901/ [Concomitant]
     Active Substance: ERGOCALCIFEROL
     Indication: PRODUCT USED FOR UNKNOWN INDICATION
     Route: 065
  2. MENS ROGAINE EXTRA STRENGTH [Suspect]
     Active Substance: MINOXIDIL
     Indication: ALOPECIA
     Dosage: HALF A CAP AS RECOMMENDED TWICE A DAY?PATIENT HAD LAST DOSE ON 10/JUL/2020
     Route: 061
     Dates: start: 202001
  3. HEAD AND SHOULDERS [Concomitant]
     Active Substance: PYRITHIONE ZINC
     Indication: DANDRUFF
     Dosage: EVERY OTHER DAY
     Route: 061

REACTIONS (1)
  - Drug ineffective [Unknown]
